FAERS Safety Report 20713651 (Version 1)
Quarter: 2022Q2

REPORT INFORMATION
  Report Type: Spontaneous
  Country: ES (occurrence: ES)
  Receive Date: 20220415
  Receipt Date: 20220415
  Transmission Date: 20220721
  Serious: Yes (Hospitalization, Other)
  Sender: FDA-Public Use
  Company Number: ES-009507513-2204ESP005222

PATIENT
  Age: 19 Year
  Sex: Female

DRUGS (2)
  1. LETERMOVIR [Suspect]
     Active Substance: LETERMOVIR
     Indication: Prophylaxis
     Dosage: 480MG/24H
     Route: 048
     Dates: start: 20211231, end: 20220131
  2. LETERMOVIR [Suspect]
     Active Substance: LETERMOVIR
     Dosage: 480MG/24H
     Route: 048
     Dates: start: 20220225

REACTIONS (2)
  - Gastritis herpes [Recovered/Resolved]
  - Product use in unapproved indication [Unknown]

NARRATIVE: CASE EVENT DATE: 20220201
